FAERS Safety Report 13126785 (Version 1)
Quarter: 2017Q1

REPORT INFORMATION
  Report Type: Spontaneous
  Country: US (occurrence: US)
  Receive Date: 20170118
  Receipt Date: 20170118
  Transmission Date: 20170428
  Serious: No
  Sender: FDA-Public Use
  Company Number: US-ROCHE-1762549

PATIENT
  Age: 62 Year
  Sex: Female

DRUGS (15)
  1. METOPROLOL TARTRATE. [Concomitant]
     Active Substance: METOPROLOL TARTRATE
     Route: 065
  2. PREDNISONE. [Concomitant]
     Active Substance: PREDNISONE
     Route: 065
  3. ASPIR 81 [Concomitant]
     Route: 065
  4. RITUXAN [Suspect]
     Active Substance: RITUXIMAB
     Indication: METASTASES TO LIVER
     Dosage: CYCLE DAY 1 100MG/10ML
     Route: 042
     Dates: start: 20140418, end: 20160519
  5. DIFLUCAN [Concomitant]
     Active Substance: FLUCONAZOLE
     Route: 065
  6. VITAMIN B12 [Concomitant]
     Active Substance: CYANOCOBALAMIN
     Route: 065
  7. MULTIVITAL [Concomitant]
  8. LANTUS [Concomitant]
     Active Substance: INSULIN GLARGINE
     Route: 065
  9. METFORMIN HYDROCHLORIDE. [Concomitant]
     Active Substance: METFORMIN HYDROCHLORIDE
  10. ATENOLOL. [Concomitant]
     Active Substance: ATENOLOL
     Route: 065
  11. CIPRO [Concomitant]
     Active Substance: CIPROFLOXACIN HYDROCHLORIDE
     Route: 065
  12. ATENOLOL/CHLORTHALIDONE [Concomitant]
     Active Substance: ATENOLOL\CHLORTHALIDONE
     Dosage: 50/25 MG
     Route: 065
  13. FOSINOPRIL [Concomitant]
     Active Substance: FOSINOPRIL
     Route: 065
  14. FELODIPINE. [Concomitant]
     Active Substance: FELODIPINE
     Route: 065
  15. MELATONIN [Concomitant]
     Active Substance: MELATONIN
     Route: 065

REACTIONS (2)
  - Disease progression [Not Recovered/Not Resolved]
  - Drug ineffective [Unknown]

NARRATIVE: CASE EVENT DATE: 201605
